FAERS Safety Report 10393963 (Version 2)
Quarter: 2014Q3

REPORT INFORMATION
  Report Type: Spontaneous
  Country: US (occurrence: None)
  Receive Date: 20140818
  Receipt Date: 20140909
  Transmission Date: 20150326
  Serious: Yes (Death, Other)
  Sender: FDA-Public Use
  Company Number: USW201408-000178

PATIENT
  Age: 65 Year
  Sex: Male
  Weight: 140.6 kg

DRUGS (1)
  1. APOKYN [Suspect]
     Active Substance: APOMORPHINE HYDROCHLORIDE
     Dosage: UP TO 6 DOSES
     Dates: start: 20111024

REACTIONS (2)
  - Death [None]
  - Weight decreased [None]

NARRATIVE: CASE EVENT DATE: 20130912
